FAERS Safety Report 20468431 (Version 3)
Quarter: 2022Q2

REPORT INFORMATION
  Report Type: Report from Study
  Country: US (occurrence: US)
  Receive Date: 20220214
  Receipt Date: 20220511
  Transmission Date: 20220721
  Serious: No
  Sender: FDA-Public Use
  Company Number: US-BIOVITRUM-2022US01902

PATIENT
  Age: 75 Year
  Sex: Male

DRUGS (1)
  1. KINERET [Suspect]
     Active Substance: ANAKINRA
     Indication: Crystal arthropathy
     Route: 058
     Dates: start: 20220122

REACTIONS (6)
  - Herpes virus infection [Unknown]
  - Petechiae [Unknown]
  - Oedema [Unknown]
  - Arthralgia [Unknown]
  - Rash [Unknown]
  - Off label use [Unknown]

NARRATIVE: CASE EVENT DATE: 20220122
